FAERS Safety Report 6239096-3 (Version None)
Quarter: 2009Q2

REPORT INFORMATION
  Report Type: 
  Country: None (occurrence: None)
  Receive Date: 20090622
  Receipt Date: 20090612
  Transmission Date: 20091009
  Serious: Yes (Other)
  Sender: FDA-Public Use
  Company Number: US-BRISTOL-MYERS SQUIBB COMPANY-14663199

PATIENT
  Age: 33 Year
  Sex: Male
  Weight: 84 kg

DRUGS (16)
  1. CETUXIMAB [Suspect]
     Indication: BLADDER CANCER
     Dosage: 500MG/M2 D1,D15/980MG:20FEB09-29MAY09.LOT#08C00404A,LOT#08C00193A.REC INF:12JUN09
     Route: 042
     Dates: start: 20090529, end: 20090529
  2. CISPLATIN [Suspect]
     Indication: BLADDER CANCER
     Dosage: ON DAY 1 = 137; STARTED ON 20FEB2009;REC INF:12JUN09
     Route: 042
     Dates: start: 20090515, end: 20090515
  3. GEMCITABINE [Suspect]
     Indication: BLADDER CANCER
     Dosage: 1000MG/M2=1980MG/ ON D1,D8,D15:20FEB09-29MAY09.REC INF:12JUN09
     Route: 042
     Dates: start: 20090529, end: 20090529
  4. APREPITANT [Concomitant]
     Dosage: APREPITANT 125MG-80MG ORAL KIT ON 2 + 3 OF CYCLE. 1 DF = 1(UNITS NOT SPECIFIED)
     Route: 048
  5. DECADRON [Concomitant]
     Dosage: DECADRON TABLET 4MG 2 DOSAGE FORM = 2 TABS ON DAY 2,3,4 OF THE CYC
     Route: 048
  6. DOXYCYCLINE HYCLATE TABS 100MG [Concomitant]
     Route: 048
  7. LEVOXYL [Concomitant]
     Dosage: 1 DF = 1 TAB LEVOXYL TABLET 112MCG(0.112MG)
     Route: 048
  8. LOVENOX [Concomitant]
     Dosage: LOVENOX SOLN 120 MG/0.8ML.
     Route: 058
  9. OMEPRAZOLE [Concomitant]
     Dosage: OMEPRAZOLE ENTERIC COATED TABLET 20MG
     Route: 048
  10. OXYCODONE HCL EXTENDED-RELEASE [Concomitant]
     Indication: PAIN
     Dosage: OXYCODONE TABLET,ER 20MG. 1 DF= 1TABS ALSO TAKEN TABLET 5MG:2 TABS EVERY 4 TO 6 HRS AS NEEDED
     Route: 048
  11. COMPAZINE [Concomitant]
     Dosage: COMPAZINE TABLET 10MG;EVERY 6 TO 8 HRS
     Route: 048
  12. ONDANSETRON [Concomitant]
     Indication: NAUSEA
     Dosage: 1 DF = 1 TABS ONDANSETRON TABLET 8MG 3TIMES A DAY
     Route: 048
  13. ONDANSETRON [Concomitant]
     Indication: VOMITING
     Dosage: 1 DF = 1 TABS ONDANSETRON TABLET 8MG 3TIMES A DAY
     Route: 048
  14. XANAX [Concomitant]
     Dosage: XANAX -TABS 0.25 MG 4TIMES A DAY .
     Route: 048
  15. LAXATIVES [Concomitant]
     Dosage: FIBRE LAXATIVE
  16. FIBER LAX [Concomitant]
     Route: 048

REACTIONS (1)
  - JUGULAR VEIN THROMBOSIS [None]
